FAERS Safety Report 8481884 (Version 3)
Quarter: 2013Q2

REPORT INFORMATION
  Report Type: Report from Study
  Country: NL (occurrence: NL)
  Receive Date: 20120329
  Receipt Date: 20130527
  Transmission Date: 20140414
  Serious: Yes (Death)
  Sender: FDA-Public Use
  Company Number: NL-PFIZER INC-2012077056

PATIENT
  Age: 75 Year
  Sex: Male
  Weight: 91 kg

DRUGS (16)
  1. SOMATROPIN [Suspect]
     Indication: GROWTH HORMONE DEFICIENCY
     Dosage: 0.1 MG, 1X/DAY
     Dates: start: 19960926, end: 20081210
  2. LEVOTHYROXINE [Concomitant]
     Indication: BLOOD THYROID STIMULATING HORMONE DECREASED
     Dosage: UNK
     Dates: start: 19850101
  3. LEVOTHYROXINE [Concomitant]
     Indication: PRIMARY HYPOTHYROIDISM
  4. CORTISONE ACETATE [Concomitant]
     Indication: BLOOD CORTICOTROPHIN ABNORMAL
     Dosage: UNK
     Dates: start: 19810201
  5. ANDRIOL [Concomitant]
     Indication: BLOOD LUTEINISING HORMONE ABNORMAL
     Dosage: UNK
     Dates: start: 19810201
  6. ANDRIOL [Concomitant]
     Indication: BLOOD FOLLICLE STIMULATING HORMONE ABNORMAL
  7. ANDRIOL [Concomitant]
     Indication: HYPOGONADISM
  8. PROSCAR [Concomitant]
     Indication: BENIGN PROSTATIC HYPERPLASIA
     Dosage: UNK
     Dates: start: 20010801
  9. TESTOSTERONE [Concomitant]
     Indication: BLOOD LUTEINISING HORMONE ABNORMAL
     Dosage: UNK
     Dates: start: 20030819
  10. TESTOSTERONE [Concomitant]
     Indication: BLOOD FOLLICLE STIMULATING HORMONE ABNORMAL
  11. TESTOSTERONE [Concomitant]
     Indication: HYPOGONADISM
  12. SIMVASTATIN [Concomitant]
     Indication: HYPERCHOLESTEROLAEMIA
     Dosage: UNK
     Dates: start: 20030201
  13. OXYBUTYNIN [Concomitant]
     Indication: BLADDER PAIN
     Dosage: UNK
     Dates: start: 20030201
  14. ASCAL [Concomitant]
     Indication: ISCHAEMIA
     Dosage: UNK
     Dates: start: 19920615
  15. PARLODEL [Concomitant]
     Indication: GALACTOSAEMIA
     Dosage: UNK
     Dates: start: 19810215
  16. OMEPRAZOLE [Concomitant]
     Dosage: UNK
     Dates: start: 20030201

REACTIONS (1)
  - Gastric haemorrhage [Fatal]
